FAERS Safety Report 23144996 (Version 2)
Quarter: 2023Q4

REPORT INFORMATION
  Report Type: Spontaneous
  Country: JP (occurrence: JP)
  Receive Date: 20231103
  Receipt Date: 20231110
  Transmission Date: 20240110
  Serious: Yes (Hospitalization)
  Sender: FDA-Public Use
  Company Number: JP-PFIZER INC-202300349526

PATIENT
  Age: 82 Year
  Sex: Male
  Weight: 58 kg

DRUGS (6)
  1. VFEND [Suspect]
     Active Substance: VORICONAZOLE
     Indication: Systemic mycosis
     Dosage: 300 MG, DAILY
     Route: 048
  2. VFEND [Suspect]
     Active Substance: VORICONAZOLE
     Dosage: 200 MG, DAILY
     Route: 048
     Dates: end: 20231010
  3. VFEND [Suspect]
     Active Substance: VORICONAZOLE
     Dosage: 300 MG, DAILY
     Route: 048
     Dates: start: 20231010, end: 20231025
  4. VFEND [Suspect]
     Active Substance: VORICONAZOLE
     Dosage: 400 MG, DAILY
     Route: 048
     Dates: start: 20231026
  5. VFEND [Suspect]
     Active Substance: VORICONAZOLE
     Dosage: 300 MG, DAILY
     Route: 048
  6. PREDNISOLONE [Concomitant]
     Active Substance: PREDNISOLONE
     Dosage: UNK
     Route: 048

REACTIONS (3)
  - Off label use [Unknown]
  - Drug level decreased [Unknown]
  - Product dose omission in error [Unknown]
